FAERS Safety Report 6568482-7 (Version None)
Quarter: 2010Q1

REPORT INFORMATION
  Report Type: 
  Country: None (occurrence: None)
  Receive Date: 20100203
  Receipt Date: 20100128
  Transmission Date: 20100710
  Serious: Yes (Other)
  Sender: FDA-Public Use
  Company Number: B0626352A

PATIENT
  Age: 85 Year
  Sex: Female

DRUGS (1)
  1. VALTREX [Suspect]
     Indication: HERPES ZOSTER
     Dosage: 1000MG THREE TIMES PER DAY
     Route: 048
     Dates: start: 20100103, end: 20100106

REACTIONS (4)
  - BLOOD CREATININE INCREASED [None]
  - DECREASED APPETITE [None]
  - RENAL DISORDER [None]
  - VOMITING [None]
